FAERS Safety Report 7677378-9 (Version None)
Quarter: 2011Q3

REPORT INFORMATION
  Report Type: 
  Country: None (occurrence: None)
  Receive Date: 20110808
  Receipt Date: 20110722
  Transmission Date: 20111222
  Serious: Yes (Hospitalization, Other)
  Sender: FDA-Public Use
  Company Number: ACO_26036_2011

PATIENT
  Sex: Male

DRUGS (1)
  1. TIZANIDINE HCL [Suspect]
     Indication: PRODUCT USED FOR UNKNOWN INDICATION
     Dates: start: 20110705

REACTIONS (2)
  - AMYOTROPHIC LATERAL SCLEROSIS [None]
  - RESPIRATORY DEPRESSION [None]
